FAERS Safety Report 17433508 (Version 1)
Quarter: 2020Q1

REPORT INFORMATION
  Report Type: Spontaneous
  Country: US (occurrence: US)
  Receive Date: 20200219
  Receipt Date: 20200219
  Transmission Date: 20200409
  Serious: Yes (Hospitalization)
  Sender: FDA-Public Use
  Company Number: US-ASTRAZENECA-2020SE23451

PATIENT
  Sex: Male

DRUGS (11)
  1. FLOVENT HFA [Concomitant]
     Active Substance: FLUTICASONE PROPIONATE
  2. SYNAGIS [Suspect]
     Active Substance: PALIVIZUMAB
     Indication: ANTIVIRAL PROPHYLAXIS
     Route: 030
  3. IPRATROPIUM BROMIDE. [Concomitant]
     Active Substance: IPRATROPIUM BROMIDE
  4. PETROLATUM. [Concomitant]
     Active Substance: PETROLATUM
  5. POLY-VI-SOL/IRON [Concomitant]
  6. SCOPOLAMINE [Concomitant]
     Active Substance: SCOPOLAMINE
  7. GLYCOPYRROLATE. [Concomitant]
     Active Substance: GLYCOPYRROLATE
  8. THERATEARS [Concomitant]
     Active Substance: CARBOXYMETHYLCELLULOSE SODIUM
  9. PHENOBARBITAL. [Concomitant]
     Active Substance: PHENOBARBITAL
  10. ALBUTEROL. [Concomitant]
     Active Substance: ALBUTEROL
  11. DESITIN [Concomitant]
     Active Substance: ZINC OXIDE

REACTIONS (1)
  - Rhinovirus infection [Unknown]
